FAERS Safety Report 9517493 (Version 3)
Quarter: 2013Q4

REPORT INFORMATION
  Report Type: Report from Study
  Country: DE (occurrence: DE)
  Receive Date: 20130911
  Receipt Date: 20131010
  Transmission Date: 20140711
  Serious: Yes (Hospitalization)
  Sender: FDA-Public Use
  Company Number: DE-ROCHE-1269745

PATIENT
  Age: 90 Year
  Sex: Female
  Weight: 45 kg

DRUGS (13)
  1. PERTUZUMAB [Suspect]
     Indication: HER-2 POSITIVE BREAST CANCER
     Dosage: CYCLE 1 LOADING DOSE
     Route: 042
     Dates: start: 20130610
  2. PERTUZUMAB [Suspect]
     Dosage: MAINTENANCE DOSE?LAST DOSE PRIOR TO SAE: 19/AUG/2013
     Route: 042
     Dates: end: 20130902
  3. PERTUZUMAB [Suspect]
     Route: 065
     Dates: start: 20130916
  4. TRASTUZUMAB [Suspect]
     Indication: HER-2 POSITIVE BREAST CANCER
     Dosage: LOADING DOSE CYCLE 1
     Route: 042
     Dates: start: 20130611
  5. TRASTUZUMAB [Suspect]
     Dosage: 282 MG, MAINTENANCE DOSE. ?LAST DOSE PRIOR TO ADVERSE EVENT: 12/AUG/2013
     Route: 042
     Dates: end: 20130902
  6. TRASTUZUMAB [Suspect]
     Route: 065
     Dates: start: 20130917
  7. VINORELBINE [Suspect]
     Indication: HER-2 POSITIVE BREAST CANCER
     Dosage: LAST DOSE PRIOR TO ADVERSE EVENT: 19/AUG/2013
     Route: 042
     Dates: start: 20130611, end: 20130902
  8. VINORELBINE [Suspect]
     Route: 065
     Dates: start: 20130917
  9. EUTHYROX [Concomitant]
     Route: 065
     Dates: start: 2004
  10. METOCLOPRAMIDE [Concomitant]
     Dosage: 20 DROPS AS REQUIRED.
     Route: 048
     Dates: start: 201306
  11. DEKRISTOL [Concomitant]
     Route: 065
     Dates: start: 201202
  12. APSOMOL [Concomitant]
     Route: 065
     Dates: start: 2008
  13. IBANDRONIC ACID [Concomitant]
     Route: 065
     Dates: start: 20130610

REACTIONS (1)
  - Pneumonia [Recovered/Resolved]
